FAERS Safety Report 10549504 (Version 1)
Quarter: 2014Q4

REPORT INFORMATION
  Report Type: Spontaneous
  Country: US (occurrence: None)
  Receive Date: 20141020
  Receipt Date: 20141020
  Transmission Date: 20150529
  Serious: No
  Sender: FDA-Public Use
  Company Number: AEGR000674

PATIENT
  Age: 76 Year
  Sex: Female
  Weight: 64.4 kg

DRUGS (3)
  1. JUXTAPID [Suspect]
     Active Substance: LOMITAPIDE MESYLATE
     Indication: TYPE IIA HYPERLIPIDAEMIA
     Route: 048
     Dates: start: 201310
  2. VITAMIN E [Concomitant]
     Active Substance: .ALPHA.-TOCOPHEROL
  3. OMEGA 3 6 9 (OMEGA 9 FATTY ACIDS, OMEGA-3 FATT ACIDS, OMEGA-6 FATTY ACIDS) [Concomitant]

REACTIONS (3)
  - Eructation [None]
  - Vomiting [None]
  - Dysgeusia [None]

NARRATIVE: CASE EVENT DATE: 201407
